FAERS Safety Report 16384047 (Version 1)
Quarter: 2019Q2

REPORT INFORMATION
  Report Type: Spontaneous
  Country: DK (occurrence: DK)
  Receive Date: 20190603
  Receipt Date: 20190603
  Transmission Date: 20190711
  Serious: Yes (Hospitalization, Other)
  Sender: FDA-Public Use
  Company Number: DK-MYLANLABS-2019M1051057

PATIENT
  Age: 20 Year
  Sex: Male

DRUGS (3)
  1. TRUXAL                             /00012102/ [Concomitant]
     Active Substance: CHLORPROTHIXENE
     Indication: PRODUCT USED FOR UNKNOWN INDICATION
     Dosage: UNK
     Route: 065
  2. METHYLPHENIDATE. [Suspect]
     Active Substance: METHYLPHENIDATE
     Dosage: 10 MILLIGRAM, QD
     Route: 065
  3. METHYLPHENIDATE. [Suspect]
     Active Substance: METHYLPHENIDATE
     Indication: ATTENTION DEFICIT/HYPERACTIVITY DISORDER
     Dosage: 600 MG, UNK
     Route: 065

REACTIONS (13)
  - Pericarditis [Unknown]
  - Cardiac contusion [Unknown]
  - Chronic obstructive pulmonary disease [Unknown]
  - Electrocardiogram ST segment elevation [Unknown]
  - Myocarditis [Unknown]
  - Myocardial infarction [Unknown]
  - Chest pain [Unknown]
  - Intentional product misuse [Unknown]
  - Pain [Unknown]
  - Arteriospasm coronary [Unknown]
  - Overdose [Unknown]
  - Pulmonary embolism [Unknown]
  - Toxicity to various agents [Unknown]
